FAERS Safety Report 5518186-4 (Version None)
Quarter: 2007Q4

REPORT INFORMATION
  Report Type: 
  Country: None (occurrence: None)
  Receive Date: 20071115
  Receipt Date: 20071105
  Transmission Date: 20080405
  Serious: Yes (Hospitalization)
  Sender: FDA-Public Use
  Company Number: US-AMGEN-KDL251097

PATIENT
  Sex: Male
  Weight: 140.7 kg

DRUGS (13)
  1. ENBREL [Suspect]
     Indication: RHEUMATOID ARTHRITIS
     Route: 058
     Dates: start: 20070915
  2. METHOTREXATE [Concomitant]
     Route: 048
  3. PLAQUENIL [Concomitant]
     Route: 048
  4. ARAVA [Concomitant]
     Route: 048
     Dates: start: 20070301
  5. PREDNISONE TAB [Concomitant]
     Route: 048
  6. PROPOXYPHENE HYDROCHLORIDE [Concomitant]
  7. ACTONEL [Concomitant]
  8. ADVAIR DISKUS 100/50 [Concomitant]
     Route: 055
  9. AMARYL [Concomitant]
  10. FOLIC ACID [Concomitant]
     Route: 048
  11. LIPITOR [Concomitant]
     Route: 048
  12. ACTOS [Concomitant]
  13. PRILOSEC [Concomitant]

REACTIONS (2)
  - PERICARDIAL EFFUSION [None]
  - PERICARDITIS [None]
